FAERS Safety Report 13658101 (Version 1)
Quarter: 2017Q2

REPORT INFORMATION
  Report Type: Report from Study
  Country: US (occurrence: US)
  Receive Date: 20170616
  Receipt Date: 20170616
  Transmission Date: 20170830
  Serious: Yes (Death)
  Sender: FDA-Public Use
  Company Number: US-TORRENT-00002945

PATIENT
  Age: 60 Year
  Sex: Male

DRUGS (3)
  1. VENLAFAXINE [Suspect]
     Active Substance: VENLAFAXINE HYDROCHLORIDE
  2. AMLODIPINE [Suspect]
     Active Substance: AMLODIPINE BESYLATE
  3. HYDROCODONE [Suspect]
     Active Substance: HYDROCODONE

REACTIONS (3)
  - Toxicity to various agents [Fatal]
  - Completed suicide [Fatal]
  - Intentional product misuse [None]
